FAERS Safety Report 25633684 (Version 1)
Quarter: 2025Q3

REPORT INFORMATION
  Report Type: Spontaneous
  Country: US (occurrence: US)
  Receive Date: 20250801
  Receipt Date: 20250801
  Transmission Date: 20251021
  Serious: Yes (Disabling, Other)
  Sender: REGENERON
  Company Number: US-REGENERON PHARMACEUTICALS, INC.-2025-120341

PATIENT
  Sex: Female

DRUGS (11)
  1. EYLEA [Suspect]
     Active Substance: AFLIBERCEPT
     Indication: Neovascular age-related macular degeneration
     Dates: start: 202504
  2. EYLEA [Suspect]
     Active Substance: AFLIBERCEPT
     Indication: Choroidal neovascularisation
     Dosage: 2 MG, EVERY 6 WEEKS INTO BOTH EYES (FORMULATION: PFS GERRESHEIMER)
     Dates: start: 20250716, end: 20250716
  3. SERTRALINE [Concomitant]
     Active Substance: SERTRALINE HYDROCHLORIDE
     Indication: Product used for unknown indication
     Dosage: 75 MG, DAILY
  4. LORAZEPAM [Concomitant]
     Active Substance: LORAZEPAM
     Indication: Product used for unknown indication
     Dosage: 0.25 MG, THREE TIMES
  5. OMEPRAZOLE [Concomitant]
     Active Substance: OMEPRAZOLE
     Indication: Product used for unknown indication
     Dosage: 20 MG, DAILY
  6. LOPERAMIDE [Concomitant]
     Active Substance: LOPERAMIDE
     Indication: Product used for unknown indication
  7. COENZYME Q10 [Concomitant]
     Active Substance: DIETARY SUPPLEMENT\UBIDECARENONE
     Indication: Product used for unknown indication
  8. MAGNESIUM [Concomitant]
     Active Substance: MAGNESIUM
     Indication: Product used for unknown indication
  9. ASPIRIN [Concomitant]
     Active Substance: ASPIRIN
     Indication: Product used for unknown indication
  10. DIETARY SUPPLEMENT [Concomitant]
     Active Substance: DIETARY SUPPLEMENT
     Indication: Product used for unknown indication
     Dosage: UNK, DAILY
  11. CEVIMELINE [Concomitant]
     Active Substance: CEVIMELINE
     Indication: Product used for unknown indication
     Dosage: 30 MG, DAILY

REACTIONS (3)
  - Blindness unilateral [Not Recovered/Not Resolved]
  - Endophthalmitis [Not Recovered/Not Resolved]
  - Endophthalmitis [Unknown]

NARRATIVE: CASE EVENT DATE: 20250501
